FAERS Safety Report 12311596 (Version 1)
Quarter: 2016Q2

REPORT INFORMATION
  Report Type: Spontaneous
  Country: GB (occurrence: GB)
  Receive Date: 20160427
  Receipt Date: 20160427
  Transmission Date: 20160815
  Serious: Yes (Other)
  Sender: FDA-Public Use
  Company Number: GB-WATSON-2016-08152

PATIENT
  Age: 20 Year
  Sex: Male
  Weight: 59 kg

DRUGS (3)
  1. VERAPAMIL (UNKNOWN) [Suspect]
     Active Substance: VERAPAMIL HYDROCHLORIDE
     Indication: ARRHYTHMIA
     Dosage: 120 MG, UNK
     Route: 048
     Dates: start: 20160228
  2. LANSOPRAZOLE. [Concomitant]
     Active Substance: LANSOPRAZOLE
     Indication: PRODUCT USED FOR UNKNOWN INDICATION
     Dosage: UNK
     Route: 065
  3. METOCLOPRAMIDE. [Concomitant]
     Active Substance: METOCLOPRAMIDE
     Indication: PRODUCT USED FOR UNKNOWN INDICATION
     Dosage: UNK
     Route: 065

REACTIONS (9)
  - Anxiety [Unknown]
  - Somnolence [Recovered/Resolved]
  - Constipation [Unknown]
  - Nausea [Unknown]
  - Abdominal pain upper [Unknown]
  - Malaise [Unknown]
  - Muscle spasms [Unknown]
  - Vomiting [Recovering/Resolving]
  - Diarrhoea [Unknown]

NARRATIVE: CASE EVENT DATE: 20160319
